FAERS Safety Report 5853383-X (Version None)
Quarter: 2008Q3

REPORT INFORMATION
  Report Type: 
  Country: None (occurrence: None)
  Receive Date: 20080820
  Receipt Date: 20061026
  Transmission Date: 20090109
  Serious: Yes (Hospitalization)
  Sender: FDA-Public Use
  Company Number: US023924

PATIENT
  Age: 74 Year
  Sex: Female
  Weight: 55 kg

DRUGS (4)
  1. TRISENOX [Suspect]
     Indication: MYELODYSPLASTIC SYNDROME
     Dosage: 13.5 MG 13.5 MG 2 TIMES/WEEK INTRAVENOUS DRIP
     Route: 041
     Dates: start: 20060710, end: 20060721
  2. TRISENOX [Suspect]
     Indication: MYELODYSPLASTIC SYNDROME
     Dosage: 13.5 MG 13.5MG 2 TIMES/WEEK INTRAVENOUS DRIP
     Route: 041
     Dates: start: 20060804
  3. ASCORBIC ACID [Concomitant]
  4. PANTECTA [Concomitant]

REACTIONS (2)
  - FEBRILE NEUTROPENIA [None]
  - MUCOSAL INFLAMMATION [None]
